FAERS Safety Report 14407484 (Version 3)
Quarter: 2018Q1

REPORT INFORMATION
  Report Type: Report from Study
  Country: US (occurrence: KR)
  Receive Date: 20180118
  Receipt Date: 20180208
  Transmission Date: 20180509
  Serious: Yes (Other)
  Sender: FDA-Public Use
  Company Number: US-SUNOVION-2017SUN005576

PATIENT
  Sex: Male

DRUGS (11)
  1. COLCHIN [Concomitant]
     Dosage: 0.6 MG, BID
     Route: 048
     Dates: start: 20170323, end: 20170407
  2. LASIX [Concomitant]
     Active Substance: FUROSEMIDE
     Dosage: (40 MG QD, 20 MG, BID, 40 MG BID, INTRAVENOUS)
     Route: 042
     Dates: start: 20170228
  3. DILATREND [Concomitant]
     Active Substance: CARVEDILOL
     Dosage: 3.125 MG, QD
     Route: 048
     Dates: start: 20170322, end: 20170327
  4. NEOMEDICOUGH [Concomitant]
     Dosage: 1 DF, TID
     Route: 048
     Dates: start: 20170322, end: 20170328
  5. NORZYME [Concomitant]
     Dosage: 457.7 MG, TID
     Route: 048
     Dates: start: 20170325
  6. DIOVAN [Concomitant]
     Active Substance: VALSARTAN
     Dosage: 80 MG, QD
     Route: 048
     Dates: start: 20170325
  7. PANTOLOC [Concomitant]
     Active Substance: PANTOPRAZOLE SODIUM
     Dosage: 20 MG, QD
     Route: 048
     Dates: start: 20170326
  8. INDACATEROL AND GLYCOPYRROLATE [Suspect]
     Active Substance: GLYCOPYRROLATE\INDACATEROL MALEATE
     Indication: CHRONIC OBSTRUCTIVE PULMONARY DISEASE
     Dosage: XOTERNA BREEZHALER (INDACATEROL, GLYCOPYRRONIUM BROMIDE) (1 DF (110/50 UG))
     Route: 055
     Dates: start: 20170228
  9. GASMOTIN [Concomitant]
     Active Substance: MOSAPRIDE CITRATE
     Dosage: 5 MG, QD/TID
     Route: 048
     Dates: start: 20170323
  10. AVENTRO [Concomitant]
     Dosage: 500/2 UG/ML (500 UG TID INHALATION)
     Route: 055
     Dates: start: 20170322, end: 20170330
  11. PROCORALAN [Concomitant]
     Active Substance: IVABRADINE
     Dosage: 5 MG, QD
     Route: 048
     Dates: start: 20170327

REACTIONS (3)
  - Diabetes mellitus [Recovered/Resolved]
  - Gout [Recovered/Resolved]
  - Dyspnoea [Recovered/Resolved]

NARRATIVE: CASE EVENT DATE: 20170321
